FAERS Safety Report 12940544 (Version 3)
Quarter: 2017Q1

REPORT INFORMATION
  Report Type: Report from Study
  Country: GB (occurrence: GB)
  Receive Date: 20161115
  Receipt Date: 20170213
  Transmission Date: 20170428
  Serious: Yes (Other)
  Sender: FDA-Public Use
  Company Number: PHFR2016GB008901

PATIENT
  Age: 10 Year
  Sex: Male
  Weight: 34.9 kg

DRUGS (9)
  1. METHOTREXATE. [Concomitant]
     Active Substance: METHOTREXATE
     Indication: PRODUCT USED FOR UNKNOWN INDICATION
     Dosage: 12 MG, QMO
     Route: 037
     Dates: start: 20120417, end: 20130723
  2. METHOTREXATE. [Concomitant]
     Active Substance: METHOTREXATE
     Dosage: 3 MONTHLY
     Route: 037
     Dates: start: 20161107
  3. TASIGNA [Suspect]
     Active Substance: NILOTINIB
     Indication: ACUTE LYMPHOCYTIC LEUKAEMIA
     Dosage: 250 MG, BID
     Route: 048
     Dates: start: 20120417, end: 20160329
  4. DEXAMETHASONE. [Concomitant]
     Active Substance: DEXAMETHASONE
     Indication: PRODUCT USED FOR UNKNOWN INDICATION
     Dosage: 20 MG/M2, UNK
     Route: 048
  5. PENICILLIN V [Concomitant]
     Active Substance: PENICILLIN V
     Indication: PRODUCT USED FOR UNKNOWN INDICATION
     Dosage: 250 MG, BID
     Route: 048
     Dates: start: 200905
  6. METHOTREXATE. [Concomitant]
     Active Substance: METHOTREXATE
     Dosage: 2 MONTHLY
     Route: 037
     Dates: start: 20130123, end: 20131129
  7. TASIGNA [Suspect]
     Active Substance: NILOTINIB
     Dosage: UNK
     Route: 048
     Dates: start: 20161108
  8. DEXAMETHASONE. [Concomitant]
     Active Substance: DEXAMETHASONE
     Dosage: 12 MG, BID
     Route: 048
     Dates: start: 20161104
  9. METHOTREXATE. [Concomitant]
     Active Substance: METHOTREXATE
     Dosage: 3 MONTHLY
     Route: 037
     Dates: start: 20131129, end: 20150501

REACTIONS (7)
  - Brain neoplasm [Recovered/Resolved]
  - Mydriasis [Recovered/Resolved]
  - Strabismus [Recovered/Resolved]
  - Growth retardation [Recovered/Resolved]
  - Vision blurred [Recovered/Resolved]
  - Central nervous system leukaemia [Recovered/Resolved]
  - Acute lymphocytic leukaemia recurrent [Recovered/Resolved]

NARRATIVE: CASE EVENT DATE: 20150310
